FAERS Safety Report 20786833 (Version 1)
Quarter: 2022Q2

REPORT INFORMATION
  Report Type: Spontaneous
  Country: US (occurrence: US)
  Receive Date: 20220505
  Receipt Date: 20220505
  Transmission Date: 20220720
  Serious: No
  Sender: FDA-Public Use
  Company Number: US-AMGEN-USASP2022074190

PATIENT
  Age: 58 Year
  Sex: Female

DRUGS (6)
  1. OTEZLA [Suspect]
     Active Substance: APREMILAST
     Indication: Product used for unknown indication
     Dosage: 30 MILLIGRAM, BID
     Route: 048
     Dates: start: 202002, end: 202204
  2. COVID-19 vaccine [Concomitant]
     Dosage: UNK
  3. COVID-19 vaccine [Concomitant]
     Dosage: UNK
  4. COVID-19 vaccine [Concomitant]
     Dosage: UNK
  5. COVID-19 vaccine [Concomitant]
     Dosage: UNK
     Dates: start: 20220331
  6. TETANUS TOXOID ADSORBED (VACCINE) [Concomitant]
     Active Substance: CLOSTRIDIUM TETANI TOXOID ANTIGEN (FORMALDEHYDE INACTIVATED)
     Dosage: UNK
     Dates: start: 20220331

REACTIONS (4)
  - Pain in extremity [Unknown]
  - Hepatic enzyme increased [Recovering/Resolving]
  - Dyspnoea [Unknown]
  - Fatigue [Unknown]

NARRATIVE: CASE EVENT DATE: 20220331
